FAERS Safety Report 13455088 (Version 5)
Quarter: 2017Q3

REPORT INFORMATION
  Report Type: Spontaneous
  Country: US (occurrence: US)
  Receive Date: 20170419
  Receipt Date: 20170911
  Transmission Date: 20171127
  Serious: No
  Sender: FDA-Public Use
  Company Number: US-ASTRAZENECA-2017SE38587

PATIENT
  Age: 826 Month
  Sex: Female
  Weight: 46.7 kg

DRUGS (9)
  1. ARIMIDEX [Suspect]
     Active Substance: ANASTROZOLE
     Indication: OVARIAN CANCER
     Dosage: GENERIC, ONE HALF PILL PER DAY
     Route: 048
     Dates: start: 20170327, end: 201704
  2. LYNPARZA [Suspect]
     Active Substance: OLAPARIB
     Indication: OVARIAN CANCER
     Route: 048
     Dates: start: 20170424
  3. NEXIUM [Suspect]
     Active Substance: ESOMEPRAZOLE MAGNESIUM
     Indication: DYSPEPSIA
     Dosage: DAILY
     Route: 048
     Dates: start: 201704
  4. LYNPARZA [Suspect]
     Active Substance: OLAPARIB
     Indication: OVARIAN CANCER
     Dosage: 50 MG TWO TIMES A DAY, 8 CAPSULES IN THE MORNING AND 8 CAPSULES AT NIGHT
     Route: 048
     Dates: start: 201703
  5. GAS-X [Concomitant]
     Active Substance: DIMETHICONE
  6. LYNPARZA [Suspect]
     Active Substance: OLAPARIB
     Indication: OVARIAN CANCER
     Dosage: REDUCED DOSE OF FOUR 50 MG CAPSULES IN THE MORNING AND EIGHT 50 MG CAPSULES AT NIGHT
     Route: 048
     Dates: start: 20170718
  7. TYLENOL [Concomitant]
     Active Substance: ACETAMINOPHEN
  8. ARIMIDEX [Suspect]
     Active Substance: ANASTROZOLE
     Indication: OVARIAN CANCER
     Dosage: GENERIC, ONE WHOLE PILL PER DAY
     Route: 048
     Dates: start: 201704
  9. PEPCID [Concomitant]
     Active Substance: FAMOTIDINE
     Indication: DYSPEPSIA
     Dosage: 2.0DF UNKNOWN
     Route: 048
     Dates: start: 20170424

REACTIONS (9)
  - Flatulence [Not Recovered/Not Resolved]
  - Headache [Unknown]
  - Pain [Not Recovered/Not Resolved]
  - Product use issue [Unknown]
  - Pleural effusion [Recovered/Resolved]
  - Diarrhoea [Not Recovered/Not Resolved]
  - Off label use [Unknown]
  - Fatigue [Not Recovered/Not Resolved]
  - Product use in unapproved indication [Unknown]

NARRATIVE: CASE EVENT DATE: 201703
